FAERS Safety Report 25569233 (Version 1)
Quarter: 2025Q3

REPORT INFORMATION
  Report Type: Spontaneous
  Country: US (occurrence: US)
  Receive Date: 20250716
  Receipt Date: 20250716
  Transmission Date: 20251020
  Serious: No
  Sender: CSL BEHRING
  Company Number: US-BEH-2025212552

PATIENT
  Sex: Male

DRUGS (3)
  1. PRIVIGEN [Suspect]
     Active Substance: HUMAN IMMUNOGLOBULIN G
     Indication: Hypogammaglobulinaemia
     Dosage: 40 G, QMT
     Route: 042
     Dates: start: 202312
  2. POMALYST [Concomitant]
     Active Substance: POMALIDOMIDE
  3. XGEVA [Concomitant]
     Active Substance: DENOSUMAB

REACTIONS (1)
  - Sinus headache [Unknown]
